FAERS Safety Report 6554413-2 (Version None)
Quarter: 2010Q1

REPORT INFORMATION
  Report Type: 
  Country: None (occurrence: None)
  Receive Date: 20100127
  Receipt Date: 20100121
  Transmission Date: 20100710
  Serious: Yes (Other)
  Sender: FDA-Public Use
  Company Number: US-PFIZER INC-2010009887

PATIENT
  Sex: Male

DRUGS (2)
  1. CADUET [Suspect]
     Route: 048
     Dates: start: 20061101
  2. CADUET [Suspect]
     Dosage: 540 MG, 1X/DAY

REACTIONS (1)
  - THROAT CANCER [None]
